FAERS Safety Report 5726243-2 (Version None)
Quarter: 2008Q2

REPORT INFORMATION
  Report Type: 
  Country: None (occurrence: None)
  Receive Date: 20080502
  Receipt Date: 20071210
  Transmission Date: 20081010
  Serious: Yes (Other)
  Sender: FDA-Public Use
  Company Number: JP-JNJFOC-20070706361

PATIENT
  Sex: Female
  Weight: 64 kg

DRUGS (7)
  1. ITRACONAZOLE [Suspect]
     Indication: PROPHYLAXIS
     Route: 048
  2. ONCOVIN [Interacting]
     Indication: LYMPHOMA
     Route: 042
  3. ITRACONAZOLE [Concomitant]
     Route: 048
  4. ADRIACIN [Concomitant]
     Indication: LYMPHOMA
     Route: 042
  5. ENDOXAN [Concomitant]
     Indication: LYMPHOMA
     Route: 042
  6. PREDONINE [Concomitant]
     Indication: LYMPHOMA
     Route: 048
  7. BAKTAR [Concomitant]
     Indication: INFECTION
     Route: 048

REACTIONS (4)
  - ARTHRALGIA [None]
  - CONSTIPATION [None]
  - DRUG INTERACTION [None]
  - MYALGIA [None]
